FAERS Safety Report 8787170 (Version 1)
Quarter: 2012Q4

REPORT INFORMATION
  Report Type: 
  Country: US (occurrence: US)
  Receive Date: 20120914
  Receipt Date: 20120914
  Transmission Date: 20130627
  Serious: No
  Sender: FDA-Public Use
  Company Number: US-PFIZER INC-2012224524

PATIENT
  Sex: Male

DRUGS (1)
  1. SUTENT [Suspect]
     Indication: RENAL CELL CARCINOMA STAGE IV
     Dosage: 50 mg, 1x/day (for 28 days and wash out period of 14 days)
     Dates: start: 2012

REACTIONS (3)
  - Constipation [Unknown]
  - Vomiting [Unknown]
  - Weight decreased [Unknown]
